FAERS Safety Report 5619140-4 (Version None)
Quarter: 2008Q1

REPORT INFORMATION
  Report Type: 
  Country: None (occurrence: None)
  Receive Date: 20080207
  Receipt Date: 20080130
  Transmission Date: 20080703
  Serious: Yes (Hospitalization, Other)
  Sender: FDA-Public Use
  Company Number: BR-ABBOTT-08P-020-0436196-00

PATIENT
  Sex: Male

DRUGS (8)
  1. HUMIRA [Suspect]
     Indication: RHEUMATOID ARTHRITIS
     Route: 058
     Dates: start: 20060727
  2. METHOTREXATE [Concomitant]
     Indication: DRUG USE FOR UNKNOWN INDICATION
  3. OMEPRAZOLE [Concomitant]
     Indication: DRUG USE FOR UNKNOWN INDICATION
  4. FOLIC ACID [Concomitant]
     Indication: DRUG USE FOR UNKNOWN INDICATION
  5. TADALAFIL [Concomitant]
     Indication: DRUG USE FOR UNKNOWN INDICATION
  6. ARGININE [Concomitant]
     Indication: DRUG USE FOR UNKNOWN INDICATION
  7. DIOSIN [Concomitant]
     Indication: DRUG USE FOR UNKNOWN INDICATION
  8. POLICRESULEN AND CINCHOCAINE HYDROCHLORIDE [Concomitant]
     Indication: DRUG USE FOR UNKNOWN INDICATION

REACTIONS (3)
  - HORMONE LEVEL ABNORMAL [None]
  - JOINT DISLOCATION [None]
  - RHEUMATOID ARTHRITIS [None]
